FAERS Safety Report 5678358-5 (Version None)
Quarter: 2008Q1

REPORT INFORMATION
  Report Type: 
  Country: None (occurrence: None)
  Receive Date: 20080321
  Receipt Date: 20080307
  Transmission Date: 20080703
  Serious: Yes (Hospitalization)
  Sender: FDA-Public Use
  Company Number: 2008000536

PATIENT
  Age: 62 Year
  Sex: Female
  Weight: 72 kg

DRUGS (9)
  1. ERLOTINIB (150 MILLIGRAM, TABLET) [Suspect]
     Indication: NON-SMALL CELL LUNG CANCER
     Dosage: 150 MG (QD),ORAL; D
     Route: 048
     Dates: start: 20071022, end: 20080213
  2. ASPIRIN [Concomitant]
  3. DEXAMETHASONE TAB [Concomitant]
  4. INSULIN (INSULIN) [Concomitant]
  5. LEVAMIR [Concomitant]
  6. LIPITOR [Concomitant]
  7. PAXIL [Concomitant]
  8. TRENTAL [Concomitant]
  9. PREMETREXED [Concomitant]

REACTIONS (7)
  - CEREBRAL ISCHAEMIA [None]
  - ENCEPHALOPATHY [None]
  - HAEMOGLOBIN DECREASED [None]
  - LETHARGY [None]
  - METASTASES TO LIVER [None]
  - MUSCULAR WEAKNESS [None]
  - PYREXIA [None]
